FAERS Safety Report 4598087-9 (Version None)
Quarter: 2005Q1

REPORT INFORMATION
  Report Type: 
  Country: None (occurrence: None)
  Receive Date: 20050304
  Receipt Date: 20050222
  Transmission Date: 20050727
  Serious: Yes (Hospitalization, Other)
  Sender: FDA-Public Use
  Company Number: US-ABBOTT-05P-163-0291712-0N

PATIENT
  Sex: Male
  Weight: 70.37 kg

DRUGS (17)
  1. TRICOR [Suspect]
     Indication: TYPE IV HYPERLIPIDAEMIA
     Route: 048
     Dates: start: 20041001, end: 20041101
  2. EXCEDRIN (MIGRAINE) [Suspect]
     Indication: PAIN
     Route: 048
     Dates: start: 19850101, end: 20041101
  3. SINUTAB [Suspect]
     Indication: HYPERSENSITIVITY
     Route: 048
     Dates: start: 19850101, end: 20041101
  4. PHENYTOIN SODIUM [Concomitant]
     Indication: HYPOGLYCAEMIA
     Route: 048
     Dates: start: 19820101
  5. VERAPAMIL [Concomitant]
     Indication: HYPERTENSION
     Route: 048
  6. DYAZIDE [Concomitant]
     Indication: HYPERTENSION
     Route: 048
  7. ZETIA [Concomitant]
     Indication: LIPIDS INCREASED
     Route: 048
     Dates: start: 20030101
  8. PYRIDOXINE HYDROCHLORIDE [Concomitant]
     Indication: VITAMIN SUPPLEMENTATION
     Route: 048
  9. FOLIC ACID [Concomitant]
     Indication: VITAMIN SUPPLEMENTATION
     Route: 048
  10. BUTALBITAL [Concomitant]
     Indication: ARTHRITIS
     Route: 048
  11. GLUCOSAMINE [Concomitant]
     Indication: ARTHRITIS
     Route: 048
  12. PSYLLIUM HYDROPHILIC MUCILLOID [Concomitant]
     Indication: PROPHYLAXIS
     Route: 048
     Dates: start: 20040101
  13. GEMFIBROZIL [Concomitant]
     Indication: BLOOD CHOLESTEROL INCREASED
     Route: 048
     Dates: start: 19820101, end: 20041001
  14. ACIDOPHILUS [Concomitant]
     Indication: GASTROINTESTINAL DISORDER
     Route: 048
  15. SPECTRAVITE [Concomitant]
     Indication: GASTROINTESTINAL DISORDER
     Route: 048
  16. IBS [Concomitant]
     Indication: GASTROINTESTINAL DISORDER
  17. ACETYLSALICYLIC ACID [Concomitant]
     Route: 048
     Dates: start: 20040101

REACTIONS (5)
  - DIVERTICULITIS [None]
  - HEPATIC ENZYME INCREASED [None]
  - HEPATIC STEATOSIS [None]
  - HEPATOMEGALY [None]
  - SEPSIS [None]
